FAERS Safety Report 14207409 (Version 1)
Quarter: 2017Q4

REPORT INFORMATION
  Report Type: Spontaneous
  Country: GB (occurrence: GB)
  Receive Date: 20171121
  Receipt Date: 20171121
  Transmission Date: 20180321
  Serious: Yes (Other)
  Sender: FDA-Public Use
  Company Number: GB-SUN PHARMACEUTICAL INDUSTRIES LTD-2017RR-155168

PATIENT
  Sex: Male

DRUGS (10)
  1. GEMCITABINE [Suspect]
     Active Substance: GEMCITABINE\GEMCITABINE HYDROCHLORIDE
     Indication: NONGERMINOMATOUS GERM CELL TUMOUR OF THE CNS
     Dosage: 800 MG/M2, CYCLIC
     Route: 065
     Dates: start: 20161122
  2. PACLITAXEL. [Suspect]
     Active Substance: PACLITAXEL
     Indication: PRODUCT USED FOR UNKNOWN INDICATION
     Dosage: 170 MG/M2, CYCLIC
     Route: 065
     Dates: start: 20161122
  3. PACLITAXEL. [Suspect]
     Active Substance: PACLITAXEL
     Dosage: 170 MG/M2, CYCLIC
     Route: 065
     Dates: start: 20170105
  4. PACLITAXEL. [Suspect]
     Active Substance: PACLITAXEL
     Dosage: 170 MG/M2, CYCLIC
     Route: 065
     Dates: start: 20161207
  5. GEMCITABINE [Suspect]
     Active Substance: GEMCITABINE\GEMCITABINE HYDROCHLORIDE
     Dosage: 800 MG/M2, CYCLIC
     Route: 065
     Dates: start: 20161207
  6. SANDOZ LTD OXALIPLATIN [Suspect]
     Active Substance: OXALIPLATIN
     Indication: NONGERMINOMATOUS GERM CELL TUMOUR OF THE CNS
     Dosage: 100 MG/M2, CYCLIC
     Route: 065
     Dates: start: 20161207
  7. SANDOZ LTD OXALIPLATIN [Suspect]
     Active Substance: OXALIPLATIN
     Dosage: 100 MG/M2, CYCLIC
     Route: 065
     Dates: start: 20161122
  8. GEMCITABINE [Suspect]
     Active Substance: GEMCITABINE\GEMCITABINE HYDROCHLORIDE
     Dosage: 800 MG/M2, CYCLIC
     Route: 065
     Dates: start: 20170105
  9. SANDOZ LTD OXALIPLATIN [Suspect]
     Active Substance: OXALIPLATIN
     Dosage: 100 MG/M2, CYCLIC
     Route: 065
     Dates: start: 20170105
  10. PLERIXAFOR [Concomitant]
     Active Substance: PLERIXAFOR
     Indication: HAEMATOPOIETIC STEM CELL MOBILISATION
     Route: 065

REACTIONS (2)
  - Pancytopenia [Unknown]
  - Brain teratoma [Unknown]
